FAERS Safety Report 21302193 (Version 3)
Quarter: 2022Q4

REPORT INFORMATION
  Report Type: Spontaneous
  Country: US (occurrence: US)
  Receive Date: 20220907
  Receipt Date: 20221003
  Transmission Date: 20230113
  Serious: Yes (Other)
  Sender: FDA-Public Use
  Company Number: US-WEST THERAPEUTIC DEVELOPMENT-2022WTD00005

PATIENT
  Sex: Female
  Weight: 76.19 kg

DRUGS (19)
  1. SUBSYS [Suspect]
     Active Substance: FENTANYL
     Indication: Pain
     Dosage: 800 ?G, AS NEEDED FOR SUDDEN ONSET PAIN
     Dates: start: 2016, end: 202206
  2. SUBSYS [Suspect]
     Active Substance: FENTANYL
     Indication: Cancer pain
     Dosage: 2 TO 6 DOSES AS NEEDED
     Route: 060
     Dates: end: 20220620
  3. TRINTELLIX [Suspect]
     Active Substance: VORTIOXETINE HYDROBROMIDE
     Dosage: UNK
     Dates: start: 2022, end: 202208
  4. XTAMPZA ER [Concomitant]
     Active Substance: OXYCODONE
  5. OXYCODONE [Concomitant]
     Active Substance: OXYCODONE
     Dosage: UNK
  6. TWO OTHER UNSPECIFIED OPIOIDS [Concomitant]
  7. METHYLPHENIDATE [Concomitant]
     Active Substance: METHYLPHENIDATE
  8. LISINOPRIL [Concomitant]
     Active Substance: LISINOPRIL
  9. XARELTO [Concomitant]
     Active Substance: RIVAROXABAN
  10. UNSPECIFIED STOOL SOFTENER [Concomitant]
  11. UNSPECIFIED INGREDIENT [Concomitant]
     Active Substance: UNSPECIFIED INGREDIENT
  12. AMBIEN [Concomitant]
     Active Substance: ZOLPIDEM TARTRATE
     Dosage: UNK, AS NEEDED
  13. MELATONIN [Concomitant]
     Active Substance: MELATONIN
     Dosage: UNK, AS NEEDED
  14. CLONAZEPAM [Concomitant]
     Active Substance: CLONAZEPAM
     Dosage: UNK, AS NEEDED
  15. LEXAPRO [Concomitant]
     Active Substance: ESCITALOPRAM OXALATE
  16. WELLBUTRIN [Concomitant]
     Active Substance: BUPROPION HYDROCHLORIDE
  17. PHENERGAN [Concomitant]
     Active Substance: PROMETHAZINE HYDROCHLORIDE
  18. ONDANSETRON [Concomitant]
     Active Substance: ONDANSETRON
  19. ADDERALL [Concomitant]
     Active Substance: AMPHETAMINE ASPARTATE\AMPHETAMINE SULFATE\DEXTROAMPHETAMINE SACCHARATE\DEXTROAMPHETAMINE SULFATE

REACTIONS (11)
  - Neoplasm progression [Not Recovered/Not Resolved]
  - Feeling abnormal [Not Recovered/Not Resolved]
  - Pain [Not Recovered/Not Resolved]
  - Reversed hot-cold sensation [Recovered/Resolved]
  - Malaise [Not Recovered/Not Resolved]
  - Pyrexia [Recovered/Resolved]
  - Hyperhidrosis [Recovered/Resolved]
  - Nausea [Recovered/Resolved]
  - Initial insomnia [Recovered/Resolved]
  - Product dose omission issue [Not Recovered/Not Resolved]
  - Product supply issue [Not Recovered/Not Resolved]

NARRATIVE: CASE EVENT DATE: 20220101
